FAERS Safety Report 24824855 (Version 1)
Quarter: 2025Q1

REPORT INFORMATION
  Report Type: Spontaneous
  Country: US (occurrence: None)
  Receive Date: 20250108
  Receipt Date: 20250108
  Transmission Date: 20250408
  Serious: Yes (Life-Threatening, Disabling)
  Sender: FDA-CTU
  Company Number: None

PATIENT
  Age: 40 Year
  Sex: Male
  Weight: 94.5 kg

DRUGS (3)
  1. ESCITALOPRAM [Suspect]
     Active Substance: ESCITALOPRAM OXALATE
     Dates: start: 20200401, end: 20220201
  2. BUSPIRONE [Suspect]
     Active Substance: BUSPIRONE HYDROCHLORIDE
  3. LAMICTAL [Suspect]
     Active Substance: LAMOTRIGINE

REACTIONS (17)
  - Electric shock sensation [None]
  - Loss of libido [None]
  - Blunted affect [None]
  - Apathy [None]
  - Anhedonia [None]
  - Akathisia [None]
  - Aphantasia [None]
  - Diabetes mellitus [None]
  - Hypertension [None]
  - Metabolic syndrome [None]
  - Weight increased [None]
  - Asthenia [None]
  - Fatigue [None]
  - Serotonin syndrome [None]
  - Psychotic disorder [None]
  - Brain injury [None]
  - Drug withdrawal syndrome [None]

NARRATIVE: CASE EVENT DATE: 20200601
